FAERS Safety Report 5923098-8 (Version None)
Quarter: 2008Q4

REPORT INFORMATION
  Report Type: 
  Country: None (occurrence: None)
  Receive Date: 20081018
  Receipt Date: 20081005
  Transmission Date: 20090506
  Serious: Yes (Life-Threatening, Other)
  Sender: FDA-Public Use
  Company Number: US-PFIZER INC-2008086227

PATIENT
  Sex: Female

DRUGS (2)
  1. CHANTIX [Suspect]
     Dates: start: 20080721
  2. PREDNISONE TAB [Suspect]

REACTIONS (6)
  - APPARENT LIFE THREATENING EVENT [None]
  - DISLOCATION OF VERTEBRA [None]
  - INTERVERTEBRAL DISC PROTRUSION [None]
  - ROAD TRAFFIC ACCIDENT [None]
  - TEMPOROMANDIBULAR JOINT SYNDROME [None]
  - WHIPLASH INJURY [None]
